FAERS Safety Report 8161249-8 (Version None)
Quarter: 2012Q1

REPORT INFORMATION
  Report Type: 
  Country: None (occurrence: None)
  Receive Date: 20120224
  Receipt Date: 20120214
  Transmission Date: 20120608
  Serious: Yes (Other)
  Sender: FDA-Public Use
  Company Number: CA-JNJFOC-20120110905

PATIENT
  Sex: Female
  Weight: 76 kg

DRUGS (3)
  1. REMICADE [Suspect]
     Indication: CROHN'S DISEASE
     Route: 042
     Dates: start: 20120110
  2. PAXIL [Concomitant]
  3. REMICADE [Suspect]
     Route: 042
     Dates: start: 20110128, end: 20111020

REACTIONS (3)
  - PREGNANCY [None]
  - MATERNAL EXPOSURE DURING PREGNANCY [None]
  - CAESAREAN SECTION [None]
